FAERS Safety Report 12557748 (Version 1)
Quarter: 2016Q3

REPORT INFORMATION
  Report Type: Spontaneous
  Country: JP (occurrence: JP)
  Receive Date: 20160714
  Receipt Date: 20160714
  Transmission Date: 20161109
  Serious: Yes (Other)
  Sender: FDA-Public Use
  Company Number: JP-PFIZER INC-2016339221

PATIENT
  Age: 26 Year
  Sex: Female
  Weight: 85.3 kg

DRUGS (7)
  1. BELSOMRA [Suspect]
     Active Substance: SUVOREXANT
     Dosage: 380 MG, 1X/DAY (16 TABLETS X 20 MG)
  2. ZOPICLONE [Suspect]
     Active Substance: ZOPICLONE
     Dosage: 100 MG, 1X/DAY (10 TABLETS X 10 MG)
     Route: 048
  3. DEPAKENE [Suspect]
     Active Substance: VALPROIC ACID
     Dosage: 11600 MG, 1X/DAY (58 TABLETS X 200 MG)
     Route: 048
  4. REFLEX [Suspect]
     Active Substance: MIRTAZAPINE
     Dosage: 240 MG, 1X/DAY (16 TABLETS X 15 MG)
     Route: 048
  5. TRAZODONE [Suspect]
     Active Substance: TRAZODONE HYDROCHLORIDE
     Dosage: 50 MG, 1X/DAY (2 TABLETS X 25 MG)
     Route: 048
  6. JZOLOFT 25MG [Suspect]
     Active Substance: SERTRALINE HYDROCHLORIDE
     Dosage: 400 MG, 1X/DAY (16 TABLETS X 25 MG)
     Route: 048
  7. ABILIFY [Suspect]
     Active Substance: ARIPIPRAZOLE
     Indication: DEPRESSION
     Dosage: 96 MG, 1X/DAY  X 6 MG)
     Route: 048

REACTIONS (5)
  - Asthenia [Recovered/Resolved]
  - Toxicity to various agents [Unknown]
  - Altered state of consciousness [Unknown]
  - Intentional overdose [Recovered/Resolved]
  - Sedation [Unknown]

NARRATIVE: CASE EVENT DATE: 20160525
